FAERS Safety Report 23752720 (Version 5)
Quarter: 2024Q3

REPORT INFORMATION
  Report Type: Spontaneous
  Country: US (occurrence: US)
  Receive Date: 20240417
  Receipt Date: 20240823
  Transmission Date: 20241016
  Serious: No
  Sender: BIOVITRUM
  Company Number: US-CTI BIOPHARMA-2023US04169

PATIENT
  Age: 70 Year
  Sex: Male

DRUGS (3)
  1. VONJO [Suspect]
     Active Substance: PACRITINIB
     Indication: Myeloproliferative neoplasm
     Dosage: 200 MG, BID
     Route: 048
     Dates: start: 20230407
  2. VONJO [Suspect]
     Active Substance: PACRITINIB
     Dosage: 200 MG, BID
     Route: 048
     Dates: start: 20230407
  3. VONJO [Suspect]
     Active Substance: PACRITINIB
     Dosage: 100 MG DAILY
     Route: 048
     Dates: start: 20230407

REACTIONS (7)
  - Compression fracture [Unknown]
  - Nausea [Unknown]
  - Loss of personal independence in daily activities [Unknown]
  - Depressed mood [Unknown]
  - Pain [Unknown]
  - Emotional disorder [Unknown]
  - Osteoporosis [Unknown]
